FAERS Safety Report 6965884-1 (Version None)
Quarter: 2010Q3

REPORT INFORMATION
  Report Type: 
  Country: None (occurrence: None)
  Receive Date: 20100903
  Receipt Date: 20100825
  Transmission Date: 20110219
  Serious: Yes (Other)
  Sender: FDA-Public Use
  Company Number: US-ABBOTT-10P-163-0666807-00

PATIENT
  Age: 29 Year
  Sex: Female

DRUGS (2)
  1. HUMIRA [Suspect]
     Indication: CROHN'S DISEASE
     Route: 058
     Dates: start: 20080101
  2. PRENATAL VITAMINS [Concomitant]
     Indication: PREGNANCY

REACTIONS (8)
  - ANTEPARTUM HAEMORRHAGE [None]
  - MUSCLE SPASMS [None]
  - NASOPHARYNGITIS [None]
  - OEDEMA PERIPHERAL [None]
  - PROGESTERONE DECREASED [None]
  - ROAD TRAFFIC ACCIDENT [None]
  - VAGINAL HAEMORRHAGE [None]
  - WEIGHT INCREASED [None]
